FAERS Safety Report 4837439-6 (Version None)
Quarter: 2005Q4

REPORT INFORMATION
  Report Type: 
  Country: None (occurrence: None)
  Receive Date: 20051122
  Receipt Date: 20051122
  Transmission Date: 20060501
  Serious: No
  Sender: FDA-Public Use
  Company Number: None

PATIENT
  Age: 39 Year
  Sex: Female

DRUGS (1)
  1. DIGIFAB [Suspect]
     Indication: OVERDOSE
     Dosage: 160 MG ONCE IV BOLUS
     Route: 040

REACTIONS (1)
  - MEDICATION ERROR [None]
